FAERS Safety Report 16740307 (Version 1)
Quarter: 2019Q3

REPORT INFORMATION
  Report Type: Spontaneous
  Country: IL (occurrence: IL)
  Receive Date: 20190826
  Receipt Date: 20190826
  Transmission Date: 20191005
  Serious: Yes (Hospitalization)
  Sender: FDA-Public Use
  Company Number: IL-SILVERGATE PHARMACEUTICALS, INC.-2019SIL00045

PATIENT
  Age: 14 Year
  Sex: Male

DRUGS (1)
  1. METHOTREXATE. [Suspect]
     Active Substance: METHOTREXATE
     Indication: OSTEOSARCOMA
     Dosage: 12000 MG/M2
     Route: 042

REACTIONS (4)
  - Status epilepticus [Recovered/Resolved]
  - Encephalopathy [Recovering/Resolving]
  - Neurotoxicity [Recovering/Resolving]
  - Respiratory acidosis [Recovered/Resolved]
